FAERS Safety Report 18467546 (Version 2)
Quarter: 2020Q4

REPORT INFORMATION
  Report Type: Spontaneous
  Country: IR (occurrence: IR)
  Receive Date: 20201105
  Receipt Date: 20201120
  Transmission Date: 20210114
  Serious: Yes (Other)
  Sender: FDA-Public Use
  Company Number: IR-PFIZER INC-2020421154

PATIENT
  Age: 22 Year
  Sex: Male

DRUGS (4)
  1. OXANDROLONE. [Concomitant]
     Active Substance: OXANDROLONE
     Dosage: 50 UG/KG, DAILY
  2. SOMATROPIN. [Suspect]
     Active Substance: SOMATROPIN
     Indication: GROWTH HORMONE DEFICIENCY
     Dosage: 0.6 IU/KG, WEEKLY IN THREE DIVIDED DOSES ADMINISTERED AT NIGHT FOR ABOUT ONE YEAR.
     Route: 058
  3. SOMATROPIN. [Suspect]
     Active Substance: SOMATROPIN
     Dosage: UNK, SIX DIVIDED DOSES
  4. OXANDROLONE. [Concomitant]
     Active Substance: OXANDROLONE
     Dosage: UNK

REACTIONS (1)
  - Papillary thyroid cancer [Unknown]
